FAERS Safety Report 8033004-0 (Version None)
Quarter: 2012Q1

REPORT INFORMATION
  Report Type: 
  Country: None (occurrence: None)
  Receive Date: 20120110
  Receipt Date: 20120105
  Transmission Date: 20120608
  Serious: Yes (Other)
  Sender: FDA-Public Use
  Company Number: BR-JNJFOC-20120101956

PATIENT
  Age: 32 Year
  Sex: Male
  Weight: 72 kg

DRUGS (5)
  1. REMICADE [Suspect]
     Dosage: SIXTH AND LAST INFUSION
     Route: 042
     Dates: start: 20111101
  2. REMICADE [Suspect]
     Route: 042
     Dates: start: 20110501
  3. REMICADE [Suspect]
     Indication: CROHN'S DISEASE
     Route: 042
     Dates: start: 20110501
  4. AZATHIOPRINE [Concomitant]
     Route: 065
  5. REMICADE [Suspect]
     Indication: COLITIS ULCERATIVE
     Dosage: SIXTH AND LAST INFUSION
     Route: 042
     Dates: start: 20111101

REACTIONS (3)
  - HAEMOGLOBIN DECREASED [None]
  - DRUG INEFFECTIVE [None]
  - HAEMORRHAGE [None]
